FAERS Safety Report 21506398 (Version 1)
Quarter: 2022Q4

REPORT INFORMATION
  Report Type: Spontaneous
  Country: GB (occurrence: GB)
  Receive Date: 20221026
  Receipt Date: 20221026
  Transmission Date: 20230113
  Serious: Yes (Death)
  Sender: FDA-Public Use
  Company Number: GB-MHRA-EYC 00256748

PATIENT
  Sex: Female

DRUGS (5)
  1. MIRTAZAPINE [Suspect]
     Active Substance: MIRTAZAPINE
     Indication: Product used for unknown indication
     Dosage: UNK
     Route: 065
  2. PHENTERMINE [Suspect]
     Active Substance: PHENTERMINE
     Indication: Weight control
     Dosage: 37.2 MILLIGRAM, ONCE A DAY
     Route: 048
  3. PHENTERMINE [Suspect]
     Active Substance: PHENTERMINE
     Dosage: 37.2 MILLIGRAM, ONCE A DAY
     Route: 048
  4. PHENTERMINE [Suspect]
     Active Substance: PHENTERMINE
     Dosage: 18.6 MILLIGRAM, ONCE A DAY (INITIALLY 18.6MG / DAY 1 WEEK, THEN 37.2MG / DAY 3 WEEKS)
     Route: 048
     Dates: start: 20210219
  5. THYROXINE [Suspect]
     Active Substance: LEVOTHYROXINE
     Indication: Product used for unknown indication
     Dosage: UNK
     Route: 065

REACTIONS (1)
  - Toxicity to various agents [Fatal]
